FAERS Safety Report 19913103 (Version 1)
Quarter: 2021Q4

REPORT INFORMATION
  Report Type: Spontaneous
  Country: NL (occurrence: NL)
  Receive Date: 20211004
  Receipt Date: 20211004
  Transmission Date: 20220303
  Serious: Yes (Other)
  Sender: FDA-Public Use
  Company Number: NL-CHEPLA-C20212655

PATIENT
  Age: 31 Year
  Sex: Male

DRUGS (7)
  1. LORAZEPAM [Suspect]
     Active Substance: LORAZEPAM
     Indication: Sedation
     Dosage: 2 MILLIGRAM, QD
     Route: 065
  2. QUETIAPINE [Suspect]
     Active Substance: QUETIAPINE
     Indication: Sedation
     Dosage: 100 MILLIGRAM, QD
     Route: 065
  3. SUFENTANIL [Suspect]
     Active Substance: SUFENTANIL
     Indication: Sedation
     Dosage: 10 MICROGRAM, QH
     Route: 065
  4. PROPOFOL [Suspect]
     Active Substance: PROPOFOL
     Indication: Sedation
     Dosage: 2.9 MILLIGRAM/KILOGRAM, QH
     Route: 065
  5. MIDAZOLAM [Suspect]
     Active Substance: MIDAZOLAM
     Indication: Sedation
     Dosage: 5 MILLIGRAM, QH
     Route: 065
  6. ERYTHROMYCIN [Concomitant]
     Active Substance: ERYTHROMYCIN
     Dosage: UNK
     Route: 065
  7. OXYBATE [Concomitant]
     Active Substance: OXYBATE
     Indication: Sedation
     Dosage: 2250 MILLIGRAM, QD

REACTIONS (3)
  - Respiratory depression [Recovered/Resolved]
  - Rhabdomyolysis [Recovered/Resolved]
  - Drug effect less than expected [Unknown]
